APPROVED DRUG PRODUCT: FELODIPINE
Active Ingredient: FELODIPINE
Strength: 2.5MG
Dosage Form/Route: TABLET, EXTENDED RELEASE;ORAL
Application: A091200 | Product #001 | TE Code: AB
Applicant: SUN PHARMACEUTICAL INDUSTRIES LTD
Approved: Dec 13, 2013 | RLD: No | RS: No | Type: RX